FAERS Safety Report 5453247-X (Version None)
Quarter: 2007Q3

REPORT INFORMATION
  Report Type: 
  Country: None (occurrence: None)
  Receive Date: 20070914
  Receipt Date: 20070904
  Transmission Date: 20080115
  Serious: Yes (Other)
  Sender: FDA-Public Use
  Company Number: US-ABBOTT-05P-163-0300171-00

PATIENT
  Age: 62 Year
  Sex: Male

DRUGS (11)
  1. LOPINAVIR AND RITONAVIR [Suspect]
     Indication: DRUG USE FOR UNKNOWN INDICATION
     Dosage: 3 CAPSULES (400 MG/100 MG), TWICE DAILY
  2. ENFURVITIDE [Suspect]
     Indication: DRUG USE FOR UNKNOWN INDICATION
     Route: 058
  3. DIDANOSINE [Suspect]
     Indication: DRUG USE FOR UNKNOWN INDICATION
  4. DELAVIRDINE [Suspect]
     Indication: DRUG USE FOR UNKNOWN INDICATION
  5. STAVUDINE [Suspect]
     Indication: DRUG USE FOR UNKNOWN INDICATION
  6. LAMIVUDINE [Suspect]
     Indication: DRUG USE FOR UNKNOWN INDICATION
  7. FLUCONAZOLE [Concomitant]
     Indication: DRUG USE FOR UNKNOWN INDICATION
     Dosage: NOT REPORTED
  8. VERAPAMIL [Concomitant]
     Indication: DRUG USE FOR UNKNOWN INDICATION
     Dosage: NOT REPORTED
  9. FUROSEMIDE [Concomitant]
     Indication: DRUG USE FOR UNKNOWN INDICATION
     Dosage: NOT REPORTED
  10. DRONABINOL [Concomitant]
     Indication: DRUG USE FOR UNKNOWN INDICATION
     Dosage: NOT REPORTED
  11. VITAMIN CAP [Concomitant]
     Indication: DRUG USE FOR UNKNOWN INDICATION
     Dosage: NOT REPORTED

REACTIONS (2)
  - ATRIAL FIBRILLATION [None]
  - ELECTROCARDIOGRAM QT PROLONGED [None]
